FAERS Safety Report 5079499-6 (Version None)
Quarter: 2006Q3

REPORT INFORMATION
  Report Type: 
  Country: None (occurrence: None)
  Receive Date: 20060814
  Receipt Date: 20050825
  Transmission Date: 20061208
  Serious: No
  Sender: FDA-Public Use
  Company Number: US-BRISTOL-MYERS SQUIBB COMPANY-13090030

PATIENT
  Age: 63 Year
  Sex: Male
  Weight: 65 kg

DRUGS (4)
  1. GLUCOVANCE [Suspect]
     Indication: DIABETES MELLITUS NON-INSULIN-DEPENDENT
     Dosage: DOSAGE FORM = TABLET (2.5/500MG PER TABLET)
     Route: 048
     Dates: start: 20020101
  2. LANOXIN [Concomitant]
  3. PREVACID [Concomitant]
  4. HYDROCODONE BITARTRATE [Concomitant]

REACTIONS (5)
  - ASTHENIA [None]
  - FATIGUE [None]
  - HEART RATE IRREGULAR [None]
  - HYPOVENTILATION [None]
  - MYALGIA [None]
